FAERS Safety Report 10110444 (Version 2)
Quarter: 2014Q2

REPORT INFORMATION
  Report Type: Spontaneous
  Country: IT (occurrence: None)
  Receive Date: 20140423
  Receipt Date: 20140509
  Transmission Date: 20141212
  Serious: Yes (Life-Threatening, Hospitalization)
  Sender: FDA-Public Use
  Company Number: 2014AP002632

PATIENT
  Age: 51 Year
  Sex: Male
  Weight: 80 kg

DRUGS (6)
  1. PAROXETINE (PAROXETINE) UNKNOWN [Suspect]
     Route: 048
     Dates: start: 20140330, end: 20140330
  2. SEROQUEL (QUETIAPINE FUMARATE) PROLONGED-RELEASE TABLET, 200MG [Suspect]
     Route: 048
     Dates: start: 20140330, end: 20140330
  3. ETILTOX (DISULFIRAM) TABLET [Suspect]
     Route: 048
     Dates: start: 20140330, end: 20140330
  4. CARBOLITHIUM (LITHIUM CARBONATE) CAPSULE, HARD, 150 MG [Suspect]
     Route: 048
     Dates: start: 20140330, end: 20140330
  5. DELORAZEPAM (DELORAZEPAM) ORAL DROPS, SOLUTION [Suspect]
     Indication: DEPRESSION
     Route: 048
     Dates: start: 20140330, end: 20140330
  6. DELORAZEPAM (DELORAZEPAM) ORAL DROPS, SOLUTION [Suspect]
     Indication: ALCOHOLISM
     Route: 048
     Dates: start: 20140330, end: 20140330

REACTIONS (5)
  - Respiratory failure [None]
  - Drug abuse [None]
  - Coma [None]
  - Hyporeflexia [None]
  - Intentional self-injury [None]
